FAERS Safety Report 14342654 (Version 1)
Quarter: 2017Q4

REPORT INFORMATION
  Report Type: Spontaneous
  Country: US (occurrence: US)
  Receive Date: 20171229
  Receipt Date: 20171229
  Transmission Date: 20180321
  Serious: No
  Sender: FDA-Public Use
  Company Number: None

PATIENT
  Age: 90 Year
  Sex: Male

DRUGS (2)
  1. LEVOFLOXACIN. [Suspect]
     Active Substance: LEVOFLOXACIN
     Indication: TENDON RUPTURE
     Route: 048
     Dates: start: 20171024, end: 20171027
  2. LEVOFLOXACIN. [Suspect]
     Active Substance: LEVOFLOXACIN
     Indication: PAIN
     Route: 048
     Dates: start: 20171024, end: 20171027

REACTIONS (3)
  - Tendon rupture [None]
  - Fall [None]
  - Arthralgia [None]

NARRATIVE: CASE EVENT DATE: 20171025
